FAERS Safety Report 10073989 (Version 1)
Quarter: 2014Q2

REPORT INFORMATION
  Report Type: Spontaneous
  Country: US (occurrence: US)
  Receive Date: 20140411
  Receipt Date: 20140411
  Transmission Date: 20141212
  Serious: No
  Sender: FDA-Public Use
  Company Number: US-SA-2013SA121154

PATIENT
  Age: 67 Year
  Sex: Male
  Weight: 81.19 kg

DRUGS (4)
  1. ALLEGRA D [Suspect]
     Indication: HYPERSENSITIVITY
     Route: 048
     Dates: start: 201002, end: 20131004
  2. ALLEGRA D [Suspect]
     Indication: RESPIRATORY TRACT CONGESTION
     Route: 048
     Dates: start: 201002, end: 20131004
  3. ZOCOR [Concomitant]
     Indication: BLOOD CHOLESTEROL
     Dates: start: 2000
  4. PRO-AIR [Concomitant]
     Dates: start: 2012

REACTIONS (1)
  - Medication residue present [Unknown]
